FAERS Safety Report 25134989 (Version 1)
Quarter: 2025Q1

REPORT INFORMATION
  Report Type: Spontaneous
  Country: CO (occurrence: CO)
  Receive Date: 20250328
  Receipt Date: 20250328
  Transmission Date: 20250409
  Serious: Yes (Other)
  Sender: CHIESI
  Company Number: CO-CHIESI-2025CHF01750

PATIENT
  Sex: Male

DRUGS (1)
  1. MYALEPT [Suspect]
     Active Substance: METRELEPTIN
     Indication: Congenital generalised lipodystrophy
     Route: 058
     Dates: start: 20250122, end: 20250221

REACTIONS (3)
  - Urocele [Unknown]
  - Inguinal hernia [Unknown]
  - Therapy interrupted [Unknown]
